FAERS Safety Report 20180685 (Version 3)
Quarter: 2022Q2

REPORT INFORMATION
  Report Type: Spontaneous
  Country: US (occurrence: US)
  Receive Date: 20211214
  Receipt Date: 20220610
  Transmission Date: 20220721
  Serious: No
  Sender: FDA-Public Use
  Company Number: US-Global Blood Therapeutics Inc-US-GBT-21-04177

PATIENT
  Sex: Male

DRUGS (3)
  1. OXBRYTA [Suspect]
     Active Substance: VOXELOTOR
     Indication: Sickle cell disease
     Route: 048
     Dates: start: 20210313
  2. OXBRYTA [Suspect]
     Active Substance: VOXELOTOR
     Route: 048
  3. OXBRYTA [Suspect]
     Active Substance: VOXELOTOR
     Route: 048

REACTIONS (6)
  - Hypoaesthesia [Unknown]
  - Central venous catheterisation [Unknown]
  - Blood creatinine increased [Not Recovered/Not Resolved]
  - Abdominal adhesions [Unknown]
  - Rash [Recovered/Resolved]
  - Headache [Recovered/Resolved]

NARRATIVE: CASE EVENT DATE: 20210101
